FAERS Safety Report 19463142 (Version 1)
Quarter: 2021Q2

REPORT INFORMATION
  Report Type: Spontaneous
  Country: GB (occurrence: GB)
  Receive Date: 20210625
  Receipt Date: 20210625
  Transmission Date: 20210717
  Serious: Yes (Other)
  Sender: FDA-Public Use
  Company Number: GB-GLAXOSMITHKLINE-GB2021137888

PATIENT
  Age: 31 Year
  Sex: Female
  Weight: 58.06 kg

DRUGS (5)
  1. BECONASE AQ [Suspect]
     Active Substance: BECLOMETHASONE DIPROPIONATE MONOHYDRATE
     Indication: SEASONAL ALLERGY
     Dosage: UNK UNK, BID (0.05%. 2 SPRAYS IN EACH NOSTRIL IN THE MORNING AND EVENING)
     Route: 045
     Dates: start: 20210615, end: 20210618
  2. LEVOTHYROXINE. [Concomitant]
     Active Substance: LEVOTHYROXINE
     Indication: ILL-DEFINED DISORDER
     Dosage: UNK
     Route: 065
  3. AMITRIPTYLINE [Concomitant]
     Active Substance: AMITRIPTYLINE
     Indication: ILL-DEFINED DISORDER
     Dosage: UNK
     Route: 065
  4. CERAZETTE [Concomitant]
     Indication: ILL-DEFINED DISORDER
     Dosage: UNK
     Route: 065
  5. FEXOFENADINE HYDROCHLORIDE. [Concomitant]
     Active Substance: FEXOFENADINE HYDROCHLORIDE
     Indication: ILL-DEFINED DISORDER
     Dosage: UNK
     Route: 065

REACTIONS (2)
  - Sinus headache [Recovered/Resolved]
  - Disturbance in attention [Recovered/Resolved]

NARRATIVE: CASE EVENT DATE: 20210616
